FAERS Safety Report 10475454 (Version 1)
Quarter: 2014Q3

REPORT INFORMATION
  Report Type: Spontaneous
  Country: US (occurrence: None)
  Receive Date: 20140924
  Receipt Date: 20140924
  Transmission Date: 20150326
  Serious: Yes (Hospitalization)
  Sender: FDA-Public Use
  Company Number: None

PATIENT
  Age: 92 Year
  Sex: Female
  Weight: 43.1 kg

DRUGS (15)
  1. ASPIRIN. [Suspect]
     Active Substance: ASPIRIN
     Indication: CORONARY ARTERY DISEASE
     Route: 048
  2. VITD [Concomitant]
  3. BUPROPION [Concomitant]
     Active Substance: BUPROPION
  4. ISOSORBIDE [Concomitant]
     Active Substance: ISOSORBIDE
  5. SLOW IRON [Concomitant]
  6. AMLODIPINE [Concomitant]
     Active Substance: AMLODIPINE BESYLATE
  7. MIRALAX [Concomitant]
     Active Substance: POLYETHYLENE GLYCOL 3350
  8. ALEVE [Suspect]
     Active Substance: NAPROXEN SODIUM
     Indication: PAIN
     Route: 048
  9. ASPIRIN. [Suspect]
     Active Substance: ASPIRIN
     Indication: TRANSIENT ISCHAEMIC ATTACK
     Route: 048
  10. MELATONIN [Concomitant]
     Active Substance: MELATONIN
  11. APAP [Concomitant]
     Active Substance: ACETAMINOPHEN
  12. OMEPRAZOLE. [Concomitant]
     Active Substance: OMEPRAZOLE
  13. LEVOTHYROXINE [Concomitant]
     Active Substance: LEVOTHYROXINE
  14. ASPIRIN. [Suspect]
     Active Substance: ASPIRIN
     Route: 048
  15. COREG [Concomitant]
     Active Substance: CARVEDILOL

REACTIONS (3)
  - Ulcer [None]
  - Haemorrhagic anaemia [None]
  - Upper gastrointestinal haemorrhage [None]

NARRATIVE: CASE EVENT DATE: 20140420
